FAERS Safety Report 19007884 (Version 2)
Quarter: 2021Q2

REPORT INFORMATION
  Report Type: Spontaneous
  Country: GB (occurrence: GB)
  Receive Date: 20210315
  Receipt Date: 20210408
  Transmission Date: 20210717
  Serious: Yes (Hospitalization)
  Sender: FDA-Public Use
  Company Number: GB-TILLOMEDPR-E2B_00003644

PATIENT
  Age: 11 Year
  Sex: Male
  Weight: 33.3 kg

DRUGS (9)
  1. RANITIDINE. [Concomitant]
     Active Substance: RANITIDINE
     Dosage: 75 MILLIGRAM, BID
     Route: 065
  2. RANITIDINE. [Concomitant]
     Active Substance: RANITIDINE
     Dosage: FREQUENCY ? IN 1 DAYS  150,MILLIGRAM
  3. PREDNISOLONE. [Concomitant]
     Active Substance: PREDNISOLONE
     Dosage: 15MG/20MG ALTERNATE DAYS, ONGOING
     Route: 065
  4. LANSOPRAZOLE. [Concomitant]
     Active Substance: LANSOPRAZOLE
     Route: 065
  5. COLECALCIFEROL [Concomitant]
     Active Substance: CHOLECALCIFEROL
     Route: 065
  6. HYDROCORTISONE. [Concomitant]
     Active Substance: HYDROCORTISONE
     Route: 065
  7. VITAMIN D [Concomitant]
     Active Substance: VITAMIN D NOS
     Dosage: 6 GTT DROPS, QD
     Route: 065
     Dates: start: 20180523
  8. ZOLEDRONIC ACID [Suspect]
     Active Substance: ZOLEDRONIC ACID
     Indication: OSTEOPOROSIS
     Dosage: 1.7,MILLIGRAM
     Route: 042
     Dates: start: 20180523, end: 20180523
  9. SANDOCAL [Concomitant]
     Dosage: 1 DOSAGE FORM, QD
     Dates: start: 20180523

REACTIONS (5)
  - Speech disorder [Unknown]
  - Vomiting [Recovered/Resolved]
  - Off label use [Unknown]
  - Electrolyte imbalance [Recovering/Resolving]
  - Confusional state [Unknown]

NARRATIVE: CASE EVENT DATE: 20180524
